FAERS Safety Report 5405490-3 (Version None)
Quarter: 2007Q3

REPORT INFORMATION
  Report Type: 
  Country: None (occurrence: None)
  Receive Date: 20070803
  Receipt Date: 20070724
  Transmission Date: 20080115
  Serious: Yes (Other)
  Sender: FDA-Public Use
  Company Number: US-PFIZER INC-2007053309

PATIENT
  Sex: Female
  Weight: 45.5 kg

DRUGS (4)
  1. CHANTIX [Suspect]
     Indication: SMOKING CESSATION THERAPY
  2. PLAVIX [Concomitant]
  3. ASPIRIN [Concomitant]
  4. LEXAPRO [Concomitant]

REACTIONS (4)
  - CARDIAC STRESS TEST [None]
  - NAUSEA [None]
  - ORAL DISCOMFORT [None]
  - RASH [None]
